FAERS Safety Report 8446979-2 (Version None)
Quarter: 2012Q2

REPORT INFORMATION
  Report Type: 
  Country: None (occurrence: None)
  Receive Date: 20120619
  Receipt Date: 20120606
  Transmission Date: 20120825
  Serious: Yes (Hospitalization, Other)
  Sender: FDA-Public Use
  Company Number: US-SANOFI-AVENTIS-2012SA040561

PATIENT
  Age: 83 Year
  Sex: Female

DRUGS (2)
  1. SOLOSTAR [Suspect]
     Dates: start: 20110101
  2. LANTUS [Suspect]
     Dosage: DOSE:40 UNIT(S)
     Route: 058
     Dates: start: 20110101

REACTIONS (5)
  - TRANSIENT ISCHAEMIC ATTACK [None]
  - CATARACT [None]
  - DEVICE MALFUNCTION [None]
  - EYE INFECTION [None]
  - BLOOD GLUCOSE INCREASED [None]
